FAERS Safety Report 19312290 (Version 1)
Quarter: 2021Q2

REPORT INFORMATION
  Report Type: Spontaneous
  Country: GB (occurrence: GB)
  Receive Date: 20210527
  Receipt Date: 20210527
  Transmission Date: 20210717
  Serious: Yes (Hospitalization)
  Sender: FDA-Public Use
  Company Number: GB-CELLTRION INC.-2021GB006910

PATIENT

DRUGS (1)
  1. REMSIMA [Suspect]
     Active Substance: INFLIXIMAB
     Indication: RHEUMATOID ARTHRITIS
     Dosage: 120 MG, EVERY OTHER WEEK (EOW) WITH REPORTED ROUTE OF ADMINISTRATION OF AS DIRECTED
     Route: 058

REACTIONS (2)
  - Intentional dose omission [Unknown]
  - Hospitalisation [Unknown]
